FAERS Safety Report 6690100-8 (Version None)
Quarter: 2010Q2

REPORT INFORMATION
  Report Type: 
  Country: None (occurrence: None)
  Receive Date: 20100421
  Receipt Date: 20100412
  Transmission Date: 20101027
  Serious: Yes (Death)
  Sender: FDA-Public Use
  Company Number: JP-JNJFOC-20100404045

PATIENT
  Age: 74 Year
  Sex: Male

DRUGS (1)
  1. REMICADE [Suspect]
     Indication: RHEUMATOID ARTHRITIS
     Dosage: HAD 1 INFUSION TOTAL (ALSO REPORTED AS DURATION OF INFUSION 4 MONTHS)
     Route: 042

REACTIONS (1)
  - COLORECTAL CANCER [None]
